FAERS Safety Report 10270824 (Version 7)
Quarter: 2015Q1

REPORT INFORMATION
  Report Type: Spontaneous
  Country: US (occurrence: US)
  Receive Date: 20140701
  Receipt Date: 20150306
  Transmission Date: 20150720
  Serious: Yes (Hospitalization, Other)
  Sender: FDA-Public Use
  Company Number: US-009507513-1406USA012105

PATIENT
  Sex: Female
  Weight: 76.64 kg

DRUGS (2)
  1. FOSAMAX [Suspect]
     Active Substance: ALENDRONATE SODIUM
     Indication: OSTEOPENIA
     Dosage: 70 MG, QW
     Route: 048
     Dates: start: 1999, end: 2012
  2. FOSAMAX PLUS D [Suspect]
     Active Substance: ALENDRONATE SODIUM\CHOLECALCIFEROL
     Indication: PRODUCT USED FOR UNKNOWN INDICATION
     Dosage: 70 MG/2800IU
     Route: 048
     Dates: start: 20060803

REACTIONS (57)
  - Gastrointestinal haemorrhage [Unknown]
  - Spinal fusion surgery [Unknown]
  - Chest pain [Unknown]
  - Vascular operation [Unknown]
  - Aortic aneurysm repair [Unknown]
  - Arthroscopy [Unknown]
  - Open reduction of fracture [Unknown]
  - Low turnover osteopathy [Unknown]
  - Adverse event [Unknown]
  - Tumour excision [Unknown]
  - Aortic aneurysm [Unknown]
  - Bronchial hyperreactivity [Unknown]
  - Ovarian cystectomy [Unknown]
  - Hernia repair [Unknown]
  - Hand repair operation [Unknown]
  - Fibula fracture [Unknown]
  - Hypertension [Unknown]
  - Hiatus hernia [Unknown]
  - Haemorrhoids [Unknown]
  - Varicose vein operation [Unknown]
  - Intramedullary rod insertion [Unknown]
  - Lacrimal duct procedure [Unknown]
  - Bursitis [Unknown]
  - Deep vein thrombosis [Unknown]
  - Ligament rupture [Unknown]
  - Tendon rupture [Unknown]
  - Debridement [Unknown]
  - Coronary artery disease [Unknown]
  - Rotator cuff repair [Unknown]
  - Femur fracture [Recovering/Resolving]
  - Femur fracture [Recovering/Resolving]
  - Hernia hiatus repair [Unknown]
  - Dacryostenosis acquired [Unknown]
  - Peripheral vascular disorder [Unknown]
  - Varicose vein [Unknown]
  - Sciatica [Recovering/Resolving]
  - Arteriospasm coronary [Unknown]
  - Craniocerebral injury [Unknown]
  - Seizure [Unknown]
  - Lacrimal duct procedure [Unknown]
  - Neuritis [Unknown]
  - Gastrooesophageal reflux disease [Unknown]
  - Myocardial infarction [Unknown]
  - Fibula fracture [Recovering/Resolving]
  - Asthma [Unknown]
  - Concussion [Unknown]
  - Tendon disorder [Unknown]
  - Hypothyroidism [Unknown]
  - Osteoporosis [Unknown]
  - Tendon operation [Unknown]
  - Intramedullary rod insertion [Unknown]
  - Ankle fracture [Unknown]
  - Rotator cuff repair [Unknown]
  - Hand fracture [Unknown]
  - Adverse event [Unknown]
  - Breast cyst excision [Unknown]
  - Limb crushing injury [Unknown]

NARRATIVE: CASE EVENT DATE: 2000
